FAERS Safety Report 10379613 (Version 1)
Quarter: 2014Q3

REPORT INFORMATION
  Report Type: Spontaneous
  Country: CZ (occurrence: CZ)
  Receive Date: 20140812
  Receipt Date: 20140812
  Transmission Date: 20150326
  Serious: Yes (Disabling, Other)
  Sender: FDA-Public Use
  Company Number: CZ-TEVA-499984ISR

PATIENT
  Age: 49 Year
  Sex: Female

DRUGS (9)
  1. LOZAP H [Concomitant]
     Dosage: 1-0-0
  2. LETROX [Concomitant]
     Dosage: 1-0-0
  3. GRANISETRONI HYDROCHLORIDUM [Concomitant]
     Dosage: 1-0-1, 2-3 DAYS AFTER CHEMOTHERAPY
  4. CYCLOPLATIN 150 [Suspect]
     Active Substance: CARBOPLATIN
     Indication: UTERINE CANCER
     Dosage: AUC-BASED DOSING (TARGET AUC = 5)
     Route: 041
     Dates: start: 20140625, end: 20140715
  5. BREVITAX 6 MG/ML [Suspect]
     Active Substance: PACLITAXEL
     Indication: UTERINE CANCER
     Route: 041
     Dates: start: 20140625, end: 20140715
  6. SIOFOR [Concomitant]
     Active Substance: METFORMIN HYDROCHLORIDE
     Dosage: 1-0-1
  7. APO-ALLOPURINOL [Concomitant]
     Active Substance: ALLOPURINOL
     Dosage: 0-1-0
  8. ATENOLOLUM [Concomitant]
     Dosage: 1-0-0
  9. MIFLONID [Concomitant]
     Dosage: 1-0-1

REACTIONS (5)
  - Arthralgia [Unknown]
  - Myalgia [Unknown]
  - Hypoaesthesia [Unknown]
  - Paraesthesia [Unknown]
  - Myoclonus [Unknown]

NARRATIVE: CASE EVENT DATE: 20140715
